FAERS Safety Report 6942315-9 (Version None)
Quarter: 2010Q3

REPORT INFORMATION
  Report Type: 
  Country: None (occurrence: None)
  Receive Date: 20100819
  Receipt Date: 20100810
  Transmission Date: 20110219
  Serious: Yes (Hospitalization)
  Sender: FDA-Public Use
  Company Number: AX255-10-0426

PATIENT
  Age: 64 Year
  Sex: Male
  Weight: 64.4 kg

DRUGS (23)
  1. ABRAXANE [Suspect]
     Indication: NON-SMALL CELL LUNG CANCER
     Dosage: 570 MG
     Dates: start: 20100624
  2. CARBOPLATIN [Suspect]
     Indication: NON-SMALL CELL LUNG CANCER
     Dosage: 440 MG
     Dates: start: 20100624
  3. ASPIRIN [Concomitant]
  4. BENZONATATE [Concomitant]
  5. CALCIUM CITRATE (CALCIUM CITRATE) [Concomitant]
  6. CELEBREX [Concomitant]
  7. CENTRUM ONE (CENRUM) [Concomitant]
  8. MULTIVITAMIN [Concomitant]
  9. FOLIC ACID [Concomitant]
  10. FOSAMAX [Concomitant]
  11. LISINOPRIL [Concomitant]
  12. ISOSORBIDE MONONITRATE [Concomitant]
  13. MULTAQ [Concomitant]
  14. PLAVIX [Concomitant]
  15. PROCHLORPERAZINE MALEATE [Concomitant]
  16. SIMVASTATIN [Concomitant]
  17. SPIRIVA [Concomitant]
  18. TRAMADOL HCL [Concomitant]
  19. VITAMIN B12 [Concomitant]
  20. VITAMIN B6 [Concomitant]
  21. ZOFRAN [Concomitant]
  22. ADVAIR HFA [Concomitant]
  23. LORATADINE [Concomitant]

REACTIONS (12)
  - BLOOD PH DECREASED [None]
  - BLOOD SODIUM DECREASED [None]
  - DEHYDRATION [None]
  - DIARRHOEA [None]
  - HAEMATOCRIT DECREASED [None]
  - HAEMOGLOBIN DECREASED [None]
  - HYPOPHAGIA [None]
  - NEUTROPENIA [None]
  - PULMONARY EMBOLISM [None]
  - RENAL FAILURE [None]
  - SEPSIS [None]
  - SHOCK [None]
